FAERS Safety Report 6434014-7 (Version None)
Quarter: 2009Q4

REPORT INFORMATION
  Report Type: 
  Country: None (occurrence: None)
  Receive Date: 20091110
  Receipt Date: 20091029
  Transmission Date: 20100525
  Serious: Yes (Other)
  Sender: FDA-Public Use
  Company Number: PHHY2009ZA47160

PATIENT
  Sex: Female

DRUGS (3)
  1. EXFORGE [Suspect]
     Indication: HYPERTENSION
     Dosage: 160/10 MG
  2. CALTRATE PLUS [Concomitant]
     Indication: ARTHRITIS
     Dosage: UNK
     Dates: start: 20070101
  3. OSTEOFLEX [Concomitant]
     Dosage: UNK
     Dates: start: 20070101

REACTIONS (1)
  - HYPERTENSION [None]
